FAERS Safety Report 7480588-7 (Version None)
Quarter: 2011Q2

REPORT INFORMATION
  Report Type: 
  Country: None (occurrence: None)
  Receive Date: 20110504
  Receipt Date: 20110419
  Transmission Date: 20111010
  Serious: Yes (Other)
  Sender: FDA-Public Use
  Company Number: 2011SP017920

PATIENT
  Age: 35 Year
  Sex: Female

DRUGS (3)
  1. TEMODAL [Suspect]
     Indication: ASTROCYTOMA
     Dosage: 75 MG/M2/QD, PO; 150 MG/M2, QD; 200 MG/M2, QD'
     Route: 048
  2. TEMODAL [Suspect]
     Indication: ASTROCYTOMA
     Dosage: 75 MG/M2/QD, PO; 150 MG/M2, QD; 200 MG/M2, QD'
     Route: 048
     Dates: end: 20101201
  3. TEMODAL [Suspect]
     Indication: ASTROCYTOMA
     Dosage: 75 MG/M2/QD, PO; 150 MG/M2, QD; 200 MG/M2, QD'
     Route: 048
     Dates: start: 20100501

REACTIONS (2)
  - ENDOMETRIAL HYPERPLASIA [None]
  - MENORRHAGIA [None]
